FAERS Safety Report 15114182 (Version 1)
Quarter: 2018Q3

REPORT INFORMATION
  Report Type: Spontaneous
  Country: US (occurrence: US)
  Receive Date: 20180706
  Receipt Date: 20180706
  Transmission Date: 20181010
  Serious: Yes (Other)
  Sender: FDA-Public Use
  Company Number: US-SA-2018SA136552

PATIENT
  Age: 31 Year
  Sex: Female

DRUGS (2)
  1. CHOLESTYRAMINE. [Concomitant]
     Active Substance: CHOLESTYRAMINE
  2. AUBAGIO [Suspect]
     Active Substance: TERIFLUNOMIDE
     Indication: MULTIPLE SCLEROSIS
     Dosage: 14 MG,QD
     Route: 048
     Dates: start: 20180216, end: 20180509

REACTIONS (7)
  - Hypersensitivity [Unknown]
  - Gait disturbance [Unknown]
  - Pruritus [Unknown]
  - Ataxia [Unknown]
  - Acute disseminated encephalomyelitis [Unknown]
  - Cognitive disorder [Unknown]
  - Adverse event [Unknown]
